FAERS Safety Report 9335308 (Version 2)
Quarter: 2013Q2

REPORT INFORMATION
  Report Type: Spontaneous
  Country: JP (occurrence: JP)
  Receive Date: 20130606
  Receipt Date: 20130607
  Transmission Date: 20140414
  Serious: Yes (Hospitalization)
  Sender: FDA-Public Use
  Company Number: JP-JNJFOC-20130521593

PATIENT
  Age: 20 Year
  Sex: Male

DRUGS (4)
  1. RISPERDAL [Suspect]
     Indication: SCHIZOPHRENIA
     Route: 048
  2. RISPERDAL [Suspect]
     Indication: SCHIZOPHRENIA
     Dosage: AS NECESSARY
     Route: 048
  3. RISPERDAL [Suspect]
     Indication: IRRITABILITY
     Route: 048
  4. RISPERDAL [Suspect]
     Indication: IRRITABILITY
     Dosage: AS NECESSARY
     Route: 048

REACTIONS (2)
  - Intentional overdose [Unknown]
  - Immobile [Unknown]
